FAERS Safety Report 6004774-8 (Version None)
Quarter: 2008Q4

REPORT INFORMATION
  Report Type: 
  Country: None (occurrence: None)
  Receive Date: 20081215
  Receipt Date: 20010605
  Transmission Date: 20090506
  Serious: Yes (Other)
  Sender: FDA-Public Use
  Company Number: 2007BH009703

PATIENT
  Age: 78 Year
  Sex: Female
  Weight: 74.9 kg

DRUGS (4)
  1. HEPARIN SODIUM 5,000 UNITS IN DEXTROSE 5% [Suspect]
     Indication: CHEST PAIN
     Dosage: 5000 UNITS;ONCE;IVBOL : EVERY HR;IV
     Route: 042
     Dates: start: 20010524, end: 20010524
  2. HEPARIN SODIUM 5,000 UNITS IN DEXTROSE 5% [Suspect]
     Indication: DEEP VEIN THROMBOSIS
     Dosage: 5000 UNITS;ONCE;IVBOL : EVERY HR;IV
     Route: 042
     Dates: start: 20010524, end: 20010524
  3. HEPARIN SODIUM 5,000 UNITS IN DEXTROSE 5% [Suspect]
     Indication: CHEST PAIN
     Dosage: 5000 UNITS;ONCE;IVBOL : EVERY HR;IV
     Route: 042
     Dates: start: 20010524, end: 20010527
  4. HEPARIN SODIUM 5,000 UNITS IN DEXTROSE 5% [Suspect]
     Indication: DEEP VEIN THROMBOSIS
     Dosage: 5000 UNITS;ONCE;IVBOL : EVERY HR;IV
     Route: 042
     Dates: start: 20010524, end: 20010527

REACTIONS (1)
  - RETROPERITONEAL HAEMORRHAGE [None]
